FAERS Safety Report 25234786 (Version 2)
Quarter: 2025Q2

REPORT INFORMATION
  Report Type: Report from Study
  Country: US (occurrence: US)
  Receive Date: 20250424
  Receipt Date: 20250526
  Transmission Date: 20250716
  Serious: No
  Sender: JOHNSON AND JOHNSON
  Company Number: US-JNJFOC-20250389661

PATIENT
  Age: 20 Year
  Sex: Female

DRUGS (1)
  1. GUSELKUMAB [Suspect]
     Active Substance: GUSELKUMAB
     Indication: Psoriasis
     Route: 058

REACTIONS (2)
  - Incorrect dose administered by device [Unknown]
  - Device deployment issue [Unknown]

NARRATIVE: CASE EVENT DATE: 20250327
